FAERS Safety Report 8444308-1 (Version None)
Quarter: 2012Q2

REPORT INFORMATION
  Report Type: 
  Country: None (occurrence: None)
  Receive Date: 20120618
  Receipt Date: 20120606
  Transmission Date: 20120825
  Serious: Yes (Other)
  Sender: FDA-Public Use
  Company Number: US-SANOFI-AVENTIS-2012SA040557

PATIENT
  Age: 80 Year
  Sex: Male
  Weight: 63.2 kg

DRUGS (1)
  1. PLAVIX [Suspect]

REACTIONS (4)
  - PAIN IN EXTREMITY [None]
  - WHITE BLOOD CELL COUNT INCREASED [None]
  - BODY HEIGHT DECREASED [None]
  - CHRONIC MYELOID LEUKAEMIA [None]
